FAERS Safety Report 18305256 (Version 1)
Quarter: 2020Q3

REPORT INFORMATION
  Report Type: Spontaneous
  Country: US (occurrence: US)
  Receive Date: 20200923
  Receipt Date: 20200923
  Transmission Date: 20201103
  Serious: No
  Sender: FDA-Public Use
  Company Number: None

PATIENT
  Age: 68 Year
  Sex: Male

DRUGS (1)
  1. AZITHROMYCIN (AZITHROMYCIN 500MG/VIL INJ) [Suspect]
     Active Substance: AZITHROMYCIN
     Indication: PNEUMONIA
     Route: 042
     Dates: start: 20200723, end: 20200723

REACTIONS (1)
  - Dyspnoea [None]

NARRATIVE: CASE EVENT DATE: 20200723
